FAERS Safety Report 6460928-8 (Version None)
Quarter: 2009Q4

REPORT INFORMATION
  Report Type: 
  Country: None (occurrence: None)
  Receive Date: 20091130
  Receipt Date: 20091116
  Transmission Date: 20100525
  Serious: Yes (Congenital Anomaly, Other)
  Sender: FDA-Public Use
  Company Number: GB-CELGENEUS-167-20484-09111549

PATIENT
  Sex: Female
  Weight: 2.23 kg

DRUGS (16)
  1. INNOHEP [Suspect]
     Route: 064
     Dates: start: 20040512, end: 20040820
  2. INNOHEP [Suspect]
     Route: 064
     Dates: start: 20040226, end: 20040512
  3. INNOHEP [Suspect]
     Route: 064
     Dates: start: 20040219, end: 20040226
  4. INNOHEP [Suspect]
     Route: 064
     Dates: start: 20040129, end: 20040219
  5. INNOHEP [Suspect]
     Route: 064
     Dates: start: 20040122, end: 20040129
  6. INNOHEP [Suspect]
     Route: 064
     Dates: start: 20031215, end: 20040122
  7. DINOPROSTONE [Concomitant]
     Route: 064
     Dates: start: 20040819, end: 20040819
  8. AUGMENTIN [Concomitant]
     Route: 064
     Dates: start: 20040820, end: 20040820
  9. DIAMORPHINE [Concomitant]
     Route: 064
     Dates: start: 20040820, end: 20040820
  10. ACETYLSALICYLIC ACID [Concomitant]
     Route: 064
     Dates: start: 20031215
  11. FOLIC ACID [Concomitant]
     Route: 064
     Dates: start: 20031001
  12. ENTONOX [Concomitant]
     Route: 064
     Dates: start: 20040819, end: 20040820
  13. PHENYLEPHRINE [Concomitant]
     Route: 064
     Dates: start: 20040820, end: 20040820
  14. LEVOBUPIVACAINE [Concomitant]
     Route: 064
     Dates: start: 20040820, end: 20040820
  15. FENTANYL-100 [Concomitant]
     Route: 064
     Dates: start: 20040820, end: 20040820
  16. OXYTOCIN [Concomitant]
     Route: 064
     Dates: start: 20040820, end: 20040820

REACTIONS (6)
  - DRUG EXPOSURE DURING PREGNANCY [None]
  - FACIAL PALSY [None]
  - FEEDING DISORDER NEONATAL [None]
  - FOETAL GROWTH RETARDATION [None]
  - HYPOGLYCAEMIA [None]
  - TRANSIENT TACHYPNOEA OF THE NEWBORN [None]
